FAERS Safety Report 8113117 (Version 3)
Quarter: 2014Q2

REPORT INFORMATION
  Report Type: Spontaneous
  Country: BR (occurrence: BR)
  Receive Date: 20110830
  Receipt Date: 20140501
  Transmission Date: 20141212
  Serious: No
  Sender: FDA-Public Use
  Company Number: BR-ELI_LILLY_AND_COMPANY-BR201108005994

PATIENT
  Sex: Male
  Weight: 76 kg

DRUGS (9)
  1. ZYPREXA [Suspect]
     Indication: NERVOUS SYSTEM DISORDER
     Dosage: 5 MG, UNKNOWN
     Route: 048
  2. ZYPREXA [Suspect]
     Dosage: 2.5 MG, QD
     Route: 048
  3. AMLODIPINE [Concomitant]
     Indication: HYPERTENSION
     Dosage: 5 MG, UNKNOWN
     Route: 065
  4. CENTRUM [Concomitant]
     Indication: VITAMIN SUPPLEMENTATION
     Dosage: UNK, UNKNOWN
     Route: 065
     Dates: start: 2011
  5. GINKGO BILOBA [Concomitant]
     Indication: CARDIOVASCULAR DISORDER
     Dosage: 160 MG, UNKNOWN
     Route: 065
     Dates: start: 2009
  6. ENALAPRIL [Concomitant]
     Indication: BLOOD PRESSURE
     Dosage: 5 MG, BID
     Route: 065
     Dates: start: 201404
  7. CHONDROITIN W/GLUCOSAMINE          /02118501/ [Concomitant]
     Indication: OSTEOARTHRITIS
     Dosage: 1 DF, QD
     Route: 065
  8. CHONDROITIN W/GLUCOSAMINE          /02118501/ [Concomitant]
     Indication: ARTHRITIS
  9. XALACOM [Concomitant]
     Indication: GLAUCOMA
     Dosage: 1 DF, UNK
     Route: 047
     Dates: start: 2006

REACTIONS (3)
  - Platelet count decreased [Not Recovered/Not Resolved]
  - Anaemia [Not Recovered/Not Resolved]
  - Off label use [Not Recovered/Not Resolved]
